FAERS Safety Report 9858341 (Version 2)
Quarter: 2014Q1

REPORT INFORMATION
  Report Type: Spontaneous
  Country: US (occurrence: US)
  Receive Date: 20140131
  Receipt Date: 20140131
  Transmission Date: 20141002
  Serious: Yes (Congenital Anomaly, Other)
  Sender: FDA-Public Use
  Company Number: US-JNJFOC-20130504139

PATIENT
  Sex: Female

DRUGS (6)
  1. TOPAMAX [Suspect]
     Indication: DRUG THERAPY
     Route: 064
     Dates: start: 2002, end: 2002
  2. TOPAMAX [Suspect]
     Indication: WEIGHT DECREASED
     Route: 064
     Dates: start: 2002, end: 2002
  3. PROZAC [Suspect]
     Indication: FOETAL EXPOSURE DURING PREGNANCY
     Route: 064
  4. ALBUTEROL [Suspect]
     Indication: FOETAL EXPOSURE DURING PREGNANCY
     Route: 064
  5. CIPRO [Suspect]
     Indication: FOETAL EXPOSURE DURING PREGNANCY
     Route: 064
  6. SYMBICORT [Suspect]
     Indication: FOETAL EXPOSURE DURING PREGNANCY
     Dosage: TWO PUFFS TWICE DAILY.
     Route: 064

REACTIONS (6)
  - Cleft palate [Recovering/Resolving]
  - Cleft lip [Unknown]
  - Deafness [Recovering/Resolving]
  - Otitis media [Unknown]
  - Anxiety [Unknown]
  - Emotional distress [Unknown]
